FAERS Safety Report 5403646-7 (Version None)
Quarter: 2007Q3

REPORT INFORMATION
  Report Type: 
  Country: None (occurrence: None)
  Receive Date: 20070802
  Receipt Date: 20070725
  Transmission Date: 20080115
  Serious: Yes (Hospitalization, Other)
  Sender: FDA-Public Use
  Company Number: PHBS2007JP11021

PATIENT
  Age: 12 Year
  Sex: Male

DRUGS (3)
  1. NEORAL [Suspect]
     Indication: NEPHROTIC SYNDROME
     Dosage: UNK, UNK
     Route: 048
     Dates: end: 20051127
  2. NEORAL [Suspect]
     Route: 048
     Dates: start: 20051218
  3. PREDNISOLONE [Concomitant]
     Indication: NEPHROTIC SYNDROME
     Route: 065

REACTIONS (10)
  - DEHYDRATION [None]
  - DISEASE RECURRENCE [None]
  - HIP SWELLING [None]
  - NEPHROPATHY TOXIC [None]
  - NEPHROTIC SYNDROME [None]
  - PERITONEAL DIALYSIS [None]
  - PROTEIN URINE PRESENT [None]
  - RENAL FAILURE ACUTE [None]
  - SHOCK [None]
  - VENA CAVA THROMBOSIS [None]
